FAERS Safety Report 9916373 (Version 1)
Quarter: 2014Q1

REPORT INFORMATION
  Report Type: Spontaneous
  Country: US (occurrence: None)
  Receive Date: 20140220
  Receipt Date: 20140220
  Transmission Date: 20141002
  Serious: Yes (Hospitalization, Other)
  Sender: FDA-Public Use
  Company Number: None

PATIENT
  Age: 57 Year
  Sex: Female
  Weight: 74.84 kg

DRUGS (1)
  1. PROPOFOL [Suspect]
     Indication: ANAESTHESIA PROCEDURE
     Dosage: AT ONSET OF SURGER
     Route: 042

REACTIONS (12)
  - Screaming [None]
  - Pain in jaw [None]
  - Trismus [None]
  - Posture abnormal [None]
  - Musculoskeletal disorder [None]
  - Muscle spasms [None]
  - Pain in extremity [None]
  - Pain in extremity [None]
  - Odynophagia [None]
  - Aphagia [None]
  - Tooth disorder [None]
  - Swelling [None]
